FAERS Safety Report 13727729 (Version 1)
Quarter: 2017Q3

REPORT INFORMATION
  Report Type: Spontaneous
  Country: IR (occurrence: IR)
  Receive Date: 20170707
  Receipt Date: 20170707
  Transmission Date: 20171127
  Serious: Yes (Hospitalization, Other)
  Sender: FDA-Public Use
  Company Number: IR-INDIVIOR LIMITED-INDV-102979-2017

PATIENT
  Age: 24 Year
  Sex: Male

DRUGS (3)
  1. BUPRENORPHINE. [Suspect]
     Active Substance: BUPRENORPHINE
     Indication: PRODUCT USED FOR UNKNOWN INDICATION
     Dosage: UNK
     Route: 065
  2. METHAMPHETAMINE [Suspect]
     Active Substance: METHAMPHETAMINE
     Indication: PRODUCT USED FOR UNKNOWN INDICATION
     Dosage: UNK
     Route: 065
  3. METHAMPHETAMINE [Suspect]
     Active Substance: METHAMPHETAMINE
     Dosage: UNK, DAILY
     Route: 065

REACTIONS (10)
  - Extrapyramidal disorder [Unknown]
  - Sedation [Recovered/Resolved]
  - Drug withdrawal syndrome [Unknown]
  - Substance-induced psychotic disorder [Recovered/Resolved]
  - Persecutory delusion [Unknown]
  - Drug abuse [Recovered/Resolved]
  - Restlessness [Unknown]
  - Somnolence [Unknown]
  - Hallucination, visual [Unknown]
  - Insomnia [Unknown]
